FAERS Safety Report 19853313 (Version 2)
Quarter: 2021Q3

REPORT INFORMATION
  Report Type: Spontaneous
  Country: US (occurrence: US)
  Receive Date: 20210919
  Receipt Date: 20210922
  Transmission Date: 20211014
  Serious: No
  Sender: FDA-Public Use
  Company Number: US-SA-2021SA306266

PATIENT
  Age: 19 Year
  Sex: Male

DRUGS (9)
  1. SELSUN BLUE 2?IN?1 [Suspect]
     Active Substance: SELENIUM SULFIDE
     Indication: PRURITUS
  2. SELSUN BLUE 2?IN?1 [Suspect]
     Active Substance: SELENIUM SULFIDE
     Indication: DANDRUFF
  3. SELSUN BLUE [Concomitant]
     Active Substance: SELENIUM SULFIDE
     Indication: DRY SKIN
  4. SELSUN BLUE [Concomitant]
     Active Substance: SELENIUM SULFIDE
     Indication: PRURITUS
     Dosage: UNK
  5. SELSUN BLUE 2?IN?1 [Suspect]
     Active Substance: SELENIUM SULFIDE
     Indication: DRY SKIN
     Dosage: UNK
  6. SELSUN BLUE ITCHY DRY SCALP [Concomitant]
     Active Substance: PYRITHIONE ZINC
     Indication: DRY SKIN
     Dosage: UNK
  7. SELSUN BLUE ITCHY DRY SCALP [Concomitant]
     Active Substance: PYRITHIONE ZINC
     Indication: PRURITUS
  8. HEAD AND SHOULDERS [Concomitant]
     Active Substance: PYRITHIONE ZINC
     Indication: PRURITUS
     Dosage: UNK
  9. HEAD AND SHOULDERS [Concomitant]
     Active Substance: PYRITHIONE ZINC
     Indication: DRY SKIN

REACTIONS (3)
  - Therapeutic product effect incomplete [Unknown]
  - Hair texture abnormal [Recovered/Resolved]
  - Drug ineffective [Recovered/Resolved]
